FAERS Safety Report 20440446 (Version 1)
Quarter: 2022Q1

REPORT INFORMATION
  Report Type: Spontaneous
  Country: IE (occurrence: IE)
  Receive Date: 20220207
  Receipt Date: 20220207
  Transmission Date: 20220423
  Serious: Yes (Death)
  Sender: FDA-Public Use
  Company Number: IE-NAPPMUNDI-GBR-2022-0094720

PATIENT
  Age: 88 Year
  Sex: Male

DRUGS (1)
  1. OXYCODONE HYDROCHLORIDE [Suspect]
     Active Substance: OXYCODONE HYDROCHLORIDE
     Indication: Analgesic therapy
     Dosage: UNK (STRENGTH 10 MG/ML)
     Route: 058
     Dates: start: 20220125, end: 20220128

REACTIONS (1)
  - Death [Fatal]
